FAERS Safety Report 24693157 (Version 1)
Quarter: 2024Q4

REPORT INFORMATION
  Report Type: Spontaneous
  Country: US (occurrence: US)
  Receive Date: 20241203
  Receipt Date: 20241203
  Transmission Date: 20250115
  Serious: Yes (Hospitalization)
  Sender: FRESENIUS MEDICAL CARE
  Company Number: US-FMCRTG-FMC-2411-001463

PATIENT
  Age: 62 Year
  Sex: Male
  Weight: 70.0 kg

DRUGS (3)
  1. DELFLEX WITH DEXTROSE 1.5% LOW MAGNESIUM LOW CALCIUM [Suspect]
     Active Substance: CALCIUM CHLORIDE\DEXTROSE\MAGNESIUM CHLORIDE\SODIUM CHLORIDE\SODIUM LACTATE
     Indication: End stage renal disease
     Dosage: CA 2.5 MEQ/L, MG 0.5 MEQ/L, EXCHANGES 5, FILL VOLUME 2900 ML, AVERAGE DWELL TIME 1.5 HOURS, LAST FIL
     Route: 033
  2. DELFLEX WITH DEXTROSE 2.5% LOW MAGNESIUM LOW CALCIUM [Suspect]
     Active Substance: CALCIUM CHLORIDE\DEXTROSE\MAGNESIUM CHLORIDE\SODIUM CHLORIDE\SODIUM LACTATE
     Indication: End stage renal disease
     Dosage: CA 2.5 MEQ/L, MG 0.5 MEQ/L, EXCHANGES 5, FILL VOLUME 2900 ML, AVERAGE DWELL TIME 1.5 HOURS, LAST FIL
     Route: 033
  3. DELFLEX WITH DEXTROSE 4.25% LOW MAGNESIUM LOW CALCIUM [Suspect]
     Active Substance: CALCIUM CHLORIDE\DEXTROSE\MAGNESIUM CHLORIDE\SODIUM CHLORIDE\SODIUM LACTATE
     Indication: End stage renal disease
     Dosage: CA 2.5 MEQ/L, MG 0.5 MEQ/L, EXCHANGES 5, FILL VOLUME 2900 ML, AVERAGE DWELL TIME 1.5 HOURS, LAST FIL
     Route: 033

REACTIONS (1)
  - Peritonitis bacterial [Recovering/Resolving]
